FAERS Safety Report 10262011 (Version 2)
Quarter: 2014Q2

REPORT INFORMATION
  Report Type: Spontaneous
  Country: CA (occurrence: CA)
  Receive Date: 20140626
  Receipt Date: 20140626
  Transmission Date: 20141212
  Serious: Yes (Life-Threatening, Other)
  Sender: FDA-Public Use
  Company Number: CA-PFIZER INC-2014069840

PATIENT
  Age: 53 Year
  Sex: Female
  Weight: 77.1 kg

DRUGS (7)
  1. CHAMPIX [Suspect]
     Indication: SMOKING CESSATION THERAPY
     Dosage: UNK
     Route: 048
     Dates: start: 20131101, end: 20140215
  2. SUBLINOX [Concomitant]
     Indication: SLEEP DISORDER
     Dosage: 10 MG, 1X/DAY AT BEDTIME
     Route: 060
     Dates: start: 201302
  3. EFFEXOR [Concomitant]
     Indication: DEPRESSION
     Dosage: 75 MG, 1X/DAY
     Route: 048
     Dates: start: 2000
  4. PANTOLOC [Concomitant]
     Indication: GASTROOESOPHAGEAL REFLUX DISEASE
     Dosage: UNK
     Dates: start: 201306
  5. IRBESARTAN [Concomitant]
     Indication: HYPERTENSION
     Dosage: 150 MG, 1X/DAY
     Dates: start: 201306
  6. METOPROLOL [Concomitant]
     Indication: HYPERTENSION
     Dosage: 12.5 MG, 2X/DAY
     Dates: start: 201306
  7. NIFEDIPINE [Concomitant]
     Indication: HYPERTENSION
     Dosage: 30 MG, UNK
     Dates: start: 201306

REACTIONS (10)
  - Suicidal ideation [Recovered/Resolved]
  - Mood altered [Recovered/Resolved]
  - Nervousness [Recovered/Resolved]
  - Progressive multiple sclerosis [Unknown]
  - Impaired work ability [Unknown]
  - Depressed mood [Recovered/Resolved]
  - Mental disorder [Recovered/Resolved]
  - Malaise [Recovered/Resolved]
  - Drug withdrawal syndrome [Unknown]
  - Fear [Unknown]
